FAERS Safety Report 24966660 (Version 2)
Quarter: 2025Q1

REPORT INFORMATION
  Report Type: Spontaneous
  Country: JP (occurrence: JP)
  Receive Date: 20250213
  Receipt Date: 20250218
  Transmission Date: 20250409
  Serious: Yes (Hospitalization, Other)
  Sender: PFIZER
  Company Number: JP-MLMSERVICE-20250205-PI384194-00270-2

PATIENT
  Age: 61 Year
  Sex: Female

DRUGS (14)
  1. METHYLPREDNISOLONE SODIUM SUCCINATE [Suspect]
     Active Substance: METHYLPREDNISOLONE SODIUM SUCCINATE
     Indication: Interstitial lung disease
     Dosage: 1000 MG, 1X/DAY (PULSE THERAPY AND THEN SECOND ROUND OF M-PSL PULSE THERAPY)
     Route: 042
  2. PREDNISOLONE [Suspect]
     Active Substance: PREDNISOLONE
     Indication: Interstitial lung disease
     Dosage: 60 MG, 1X/DAY (HIGH-DOSE)
  3. CYCLOPHOSPHAMIDE [Suspect]
     Active Substance: CYCLOPHOSPHAMIDE
     Indication: Interstitial lung disease
     Route: 042
  4. CYCLOPHOSPHAMIDE [Suspect]
     Active Substance: CYCLOPHOSPHAMIDE
     Route: 042
  5. MONTELUKAST SODIUM [Concomitant]
     Active Substance: MONTELUKAST SODIUM
     Indication: Asthma
  6. BUDESONIDE [Concomitant]
     Active Substance: BUDESONIDE
     Indication: Asthma
     Route: 055
  7. FORMOTEROL FUMARATE [Concomitant]
     Active Substance: FORMOTEROL FUMARATE
     Indication: Asthma
  8. OXYGEN [Concomitant]
     Active Substance: OXYGEN
     Indication: Interstitial lung disease
     Route: 045
  9. OXYGEN [Concomitant]
     Active Substance: OXYGEN
     Route: 045
  10. OXYGEN [Concomitant]
     Active Substance: OXYGEN
  11. OXYGEN [Concomitant]
     Active Substance: OXYGEN
  12. OXYGEN [Concomitant]
     Active Substance: OXYGEN
  13. OXYGEN [Concomitant]
     Active Substance: OXYGEN
  14. OXYGEN [Concomitant]
     Active Substance: OXYGEN

REACTIONS (1)
  - Cytomegalovirus infection reactivation [Recovering/Resolving]
